FAERS Safety Report 21004284 (Version 1)
Quarter: 2022Q2

REPORT INFORMATION
  Report Type: Report from Study
  Country: BR (occurrence: BR)
  Receive Date: 20220624
  Receipt Date: 20220624
  Transmission Date: 20220721
  Serious: Yes (Hospitalization, Other)
  Sender: FDA-Public Use
  Company Number: BR-JNJFOC-20220546562

PATIENT
  Age: 8 Decade
  Sex: Female

DRUGS (7)
  1. SIMPONI [Suspect]
     Active Substance: GOLIMUMAB
     Indication: Rheumatoid arthritis
     Route: 058
     Dates: start: 202010
  2. SIMPONI [Suspect]
     Active Substance: GOLIMUMAB
  3. COVID-19 VACCINE NOS [Suspect]
     Active Substance: COVID-19 VACCINE NOS
     Route: 065
  4. INVESTIGATIONAL PRODUCT [Concomitant]
     Active Substance: INVESTIGATIONAL PRODUCT
     Dosage: 1ST AND 2ND DOSE
     Route: 065
  5. PFIZER VACCINE [Concomitant]
     Route: 065
  6. MESALAMINE [Concomitant]
     Active Substance: MESALAMINE
     Route: 065
  7. MESACOL [BETHANECHOL CHLORIDE] [Concomitant]
     Indication: Inflammation
     Route: 065

REACTIONS (7)
  - Chondrosarcoma [Recovering/Resolving]
  - Diverticulitis [Unknown]
  - Rheumatoid arthritis [Unknown]
  - Thyroid mass [Unknown]
  - Alopecia [Recovered/Resolved]
  - Therapeutic response decreased [Unknown]
  - Product dose omission issue [Unknown]

NARRATIVE: CASE EVENT DATE: 20220101
